FAERS Safety Report 8262771-6 (Version None)
Quarter: 2012Q2

REPORT INFORMATION
  Report Type: 
  Country: None (occurrence: None)
  Receive Date: 20120405
  Receipt Date: 20120327
  Transmission Date: 20120825
  Serious: Yes (Other)
  Sender: FDA-Public Use
  Company Number: US-JNJFOC-20120300754

PATIENT
  Sex: Male

DRUGS (2)
  1. INVEGA SUSTENNA [Suspect]
     Indication: BIPOLAR I DISORDER
     Route: 030
     Dates: start: 20111202
  2. INVEGA SUSTENNA [Suspect]
     Route: 030
     Dates: start: 20111209, end: 20120111

REACTIONS (8)
  - BODY TEMPERATURE FLUCTUATION [None]
  - SLEEP TERROR [None]
  - DRY MOUTH [None]
  - DEPRESSION [None]
  - ERECTILE DYSFUNCTION [None]
  - EJACULATION DELAYED [None]
  - WEIGHT INCREASED [None]
  - IRRITABILITY [None]
